FAERS Safety Report 12547777 (Version 3)
Quarter: 2016Q3

REPORT INFORMATION
  Report Type: Spontaneous
  Country: US (occurrence: US)
  Receive Date: 20160712
  Receipt Date: 20160906
  Transmission Date: 20161109
  Serious: No
  Sender: FDA-Public Use
  Company Number: US-009507513-1607USA003001

PATIENT
  Age: 20 Year
  Sex: Female
  Weight: 124.26 kg

DRUGS (7)
  1. CAMBIA [Concomitant]
     Active Substance: DICLOFENAC POTASSIUM
  2. AMLODIPINE [Concomitant]
     Active Substance: AMLODIPINE BESYLATE
  3. NUVARING [Suspect]
     Active Substance: ETHINYL ESTRADIOL\ETONOGESTREL
     Indication: CONTRACEPTION
     Dosage: 1 DF, 3 WEEKS IN 1 WEEK OUT
     Route: 067
     Dates: start: 201603, end: 20160515
  4. ZOFRAN [Concomitant]
     Active Substance: ONDANSETRON HYDROCHLORIDE
  5. ZOCOR [Concomitant]
     Active Substance: SIMVASTATIN
     Route: 048
  6. ZOMIG [Concomitant]
     Active Substance: ZOLMITRIPTAN
  7. TRAZODONE HYDROCHLORIDE. [Concomitant]
     Active Substance: TRAZODONE HYDROCHLORIDE
     Route: 048

REACTIONS (1)
  - Menorrhagia [Recovered/Resolved]

NARRATIVE: CASE EVENT DATE: 20160515
